FAERS Safety Report 7469994-4 (Version None)
Quarter: 2011Q2

REPORT INFORMATION
  Report Type: 
  Country: None (occurrence: None)
  Receive Date: 20110510
  Receipt Date: 20110411
  Transmission Date: 20111010
  Serious: Yes (Hospitalization, Other)
  Sender: FDA-Public Use
  Company Number: US-BAYER-201026897NA

PATIENT
  Age: 18 Year
  Sex: Female
  Weight: 55.329 kg

DRUGS (9)
  1. DROSPIRENONE AND ETHINYL ESTRADIOL [Suspect]
     Dosage: UNK UNK, QD
     Route: 048
     Dates: start: 20080801, end: 20080901
  2. GLYCOPYRROLATE [Concomitant]
     Indication: HYPERHIDROSIS
     Dosage: UNK UNK, UNK
     Dates: start: 20080725, end: 20090611
  3. DUAC KIT [Concomitant]
     Indication: ACNE
     Dosage: UNK UNK, UNK
     Route: 061
  4. DROSPIRENONE AND ETHINYL ESTRADIOL [Suspect]
     Dosage: UNK, QD
     Route: 048
     Dates: start: 20090601, end: 20090601
  5. YAZ [Suspect]
     Dosage: UNK UNK, QD
     Route: 048
     Dates: start: 20080901, end: 20090601
  6. YASMIN [Suspect]
     Indication: ACNE
     Dosage: UNK UNK, QD
     Route: 048
     Dates: start: 20080801, end: 20080901
  7. YAZ [Suspect]
     Dosage: UNK, QD
     Route: 048
     Dates: start: 20090601, end: 20090901
  8. DORYX [Concomitant]
     Indication: ACNE
     Dosage: UNK UNK, UNK
     Dates: start: 20081028, end: 20090626
  9. YASMIN [Suspect]
     Dosage: UNK, QD
     Route: 048
     Dates: start: 20090601, end: 20090901

REACTIONS (8)
  - ABDOMINAL PAIN UPPER [None]
  - DEPRESSED MOOD [None]
  - GALLBLADDER DISORDER [None]
  - DISTURBANCE IN ATTENTION [None]
  - WEIGHT DECREASED [None]
  - CHOLECYSTITIS CHRONIC [None]
  - NAUSEA [None]
  - DYSPEPSIA [None]
